FAERS Safety Report 14562102 (Version 2)
Quarter: 2018Q1

REPORT INFORMATION
  Report Type: Spontaneous
  Country: RU (occurrence: RU)
  Receive Date: 20180222
  Receipt Date: 20180308
  Transmission Date: 20180509
  Serious: Yes (Other)
  Sender: FDA-Public Use
  Company Number: RU-ASTRAZENECA-2018SE21176

PATIENT
  Age: 51 Year
  Sex: Female
  Weight: 103 kg

DRUGS (6)
  1. FORXIGA [Suspect]
     Active Substance: DAPAGLIFLOZIN
     Indication: TYPE 2 DIABETES MELLITUS
     Route: 048
     Dates: start: 2013, end: 2017
  2. GALVUS [Concomitant]
     Active Substance: VILDAGLIPTIN
  3. INSULIN [Concomitant]
     Active Substance: INSULIN NOS
  4. FORXIGA [Suspect]
     Active Substance: DAPAGLIFLOZIN
     Indication: TYPE 2 DIABETES MELLITUS
     Route: 048
     Dates: start: 2017
  5. GLIMEPIRIDE. [Concomitant]
     Active Substance: GLIMEPIRIDE
  6. GLUCOPHAGE [Concomitant]
     Active Substance: METFORMIN HYDROCHLORIDE

REACTIONS (7)
  - Gangrene [Recovered/Resolved]
  - Musculoskeletal disorder [Not Recovered/Not Resolved]
  - Appendicitis [Recovered/Resolved]
  - Pruritus genital [Not Recovered/Not Resolved]
  - Off label use [Recovered/Resolved]
  - Ischaemic stroke [Recovered/Resolved]
  - Toe amputation [Unknown]

NARRATIVE: CASE EVENT DATE: 2013
